FAERS Safety Report 9825081 (Version 2)
Quarter: 2014Q1

REPORT INFORMATION
  Report Type: Spontaneous
  Country: US (occurrence: US)
  Receive Date: 20140117
  Receipt Date: 20140226
  Transmission Date: 20141002
  Serious: No
  Sender: FDA-Public Use
  Company Number: US-BAYER-2014-008362

PATIENT
  Sex: Female

DRUGS (12)
  1. BETASERON [Suspect]
     Indication: PRODUCT USED FOR UNKNOWN INDICATION
     Dosage: 0.3 MG, UNK
     Route: 065
  2. AMPYRA [Suspect]
     Indication: PRODUCT USED FOR UNKNOWN INDICATION
     Dosage: 10 MG, BID
     Route: 048
  3. COD LIVER OIL [Concomitant]
  4. LIPITOR [Concomitant]
     Dosage: 10 MG, UNK
  5. OMEPRAZOLE [Concomitant]
     Dosage: 20 MG, UNK
  6. ECOTRIN [Concomitant]
     Dosage: 325 MG, UNK
  7. ZANTAC [Concomitant]
     Dosage: 25 MG, UNK
  8. CALCIUM CITRATE [Concomitant]
  9. VITAMIN D3 [Concomitant]
     Dosage: 5000 U, UNK
  10. CO Q-10 [Concomitant]
  11. FLAX SEED OIL [Concomitant]
  12. EVENING PRIMROSE OIL [Concomitant]

REACTIONS (1)
  - Injection site pain [Unknown]
